FAERS Safety Report 20408434 (Version 3)
Quarter: 2022Q2

REPORT INFORMATION
  Report Type: Report from Study
  Country: US (occurrence: US)
  Receive Date: 20220201
  Receipt Date: 20220525
  Transmission Date: 20220721
  Serious: Yes (Hospitalization, Other)
  Sender: FDA-Public Use
  Company Number: US-TAKEDA-US202012946

PATIENT
  Age: 80 Year
  Sex: Female

DRUGS (5)
  1. LANADELUMAB [Suspect]
     Active Substance: LANADELUMAB
     Indication: Immune system disorder
     Dosage: 300 MILLIGRAM, Q2WEEKS
     Route: 058
  2. LANADELUMAB [Suspect]
     Active Substance: LANADELUMAB
     Indication: Hereditary angioedema
     Dosage: 2 MILLILITER, Q2WEEKS
     Route: 058
     Dates: start: 201901
  3. LANADELUMAB [Suspect]
     Active Substance: LANADELUMAB
     Dosage: 300 MILLIGRAM, Q2WEEKS
     Route: 058
     Dates: start: 201905
  4. LANADELUMAB [Suspect]
     Active Substance: LANADELUMAB
     Dosage: 300 MILLIGRAM, Q2WEEKS
     Route: 058
     Dates: start: 20190523
  5. LANADELUMAB [Suspect]
     Active Substance: LANADELUMAB
     Dosage: 2 MILLIGRAM, Q2WEEKS
     Route: 058
     Dates: start: 202106

REACTIONS (7)
  - COVID-19 pneumonia [Unknown]
  - Hospitalisation [Unknown]
  - Heart rate irregular [Unknown]
  - Hereditary angioedema [Recovered/Resolved]
  - Product dose omission issue [Recovering/Resolving]
  - Therapy interrupted [Unknown]
  - Insurance issue [Unknown]

NARRATIVE: CASE EVENT DATE: 20200331
